FAERS Safety Report 20385988 (Version 1)
Quarter: 2022Q1

REPORT INFORMATION
  Report Type: Spontaneous
  Country: US (occurrence: US)
  Receive Date: 20220127
  Receipt Date: 20220127
  Transmission Date: 20220423
  Serious: Yes (Death)
  Sender: FDA-Public Use
  Company Number: US-ELI_LILLY_AND_COMPANY-US202201008473

PATIENT
  Age: 44 Year
  Sex: Female

DRUGS (16)
  1. GEMZAR [Suspect]
     Active Substance: GEMCITABINE HYDROCHLORIDE
     Indication: Product used for unknown indication
     Dosage: 1640 MG, UNKNOWN
     Route: 065
     Dates: start: 20200120, end: 20200707
  2. FLUOXETINE HYDROCHLORIDE [Suspect]
     Active Substance: FLUOXETINE HYDROCHLORIDE
     Indication: Menopause
     Dosage: 10 MG, DAILY
     Route: 048
     Dates: start: 20030501
  3. CHOLECALCIFEROL [Concomitant]
     Active Substance: CHOLECALCIFEROL
     Indication: Osteopenia
     Dosage: 5000 U, DAILY
     Route: 048
     Dates: start: 20170801
  4. TRAMADOL [Concomitant]
     Active Substance: TRAMADOL
     Indication: Abdominal pain
     Dosage: 25 MG, DAILY (ONE TO TWO TIMES)
     Route: 048
     Dates: start: 20200103
  5. DIETARY SUPPLEMENT [Concomitant]
     Active Substance: DIETARY SUPPLEMENT
     Indication: Constipation
     Dosage: 2 DOSAGE FORM, DAILY
     Route: 048
     Dates: start: 20191227
  6. SMOOTH MOVE [Concomitant]
     Indication: Constipation
     Dosage: 1 DOSAGE FORM, PRN
     Route: 048
     Dates: start: 20191215
  7. TUMS SMOOTHIES [Concomitant]
     Active Substance: CALCIUM CARBONATE
     Indication: Gastrooesophageal reflux disease
     Dosage: 750 MG, PRN
     Route: 048
     Dates: start: 20200123
  8. ZOFRAN [Concomitant]
     Active Substance: ONDANSETRON HYDROCHLORIDE
     Indication: Prophylaxis
     Dosage: 8 MG, PRN
     Route: 048
     Dates: start: 20200129
  9. GAS-X [Concomitant]
     Active Substance: DIMETHICONE
     Indication: Abdominal distension
     Dosage: 125 MG, PRN
     Route: 048
     Dates: start: 20200222
  10. TYLENOL [Concomitant]
     Active Substance: ACETAMINOPHEN
     Indication: Headache
     Dosage: 500 MG, PRN
     Route: 048
     Dates: start: 20200228
  11. BENADRYL [Concomitant]
     Active Substance: DIPHENHYDRAMINE HYDROCHLORIDE
     Indication: Prophylaxis
     Dosage: 25 MG, PRN
     Route: 048
     Dates: start: 20200416
  12. MOMETASONE FUROATE [Concomitant]
     Active Substance: MOMETASONE FUROATE
     Indication: Paraesthesia
     Dosage: 1 DOSAGE FORM, DAILY
     Route: 061
     Dates: start: 20200429
  13. NEURONTIN [Concomitant]
     Active Substance: GABAPENTIN
     Indication: Paraesthesia
     Dosage: 1200 MG, DAILY
     Route: 048
     Dates: start: 20200506
  14. ROBAXIN [Concomitant]
     Active Substance: METHOCARBAMOL
     Indication: Muscle spasms
     Dosage: 500 MG, PRN
     Route: 048
     Dates: start: 20200514
  15. ALEVE [Concomitant]
     Active Substance: NAPROXEN SODIUM
     Indication: Muscle tightness
     Dosage: 220 MG, PRN
     Route: 048
     Dates: start: 20200522
  16. PROTONIX [Concomitant]
     Active Substance: PANTOPRAZOLE SODIUM
     Indication: Gastrooesophageal reflux disease
     Dosage: 40 MG, DAILY
     Route: 048
     Dates: start: 20200527

REACTIONS (3)
  - Malignant neoplasm progression [Fatal]
  - Retinal pigment epitheliopathy [Not Recovered/Not Resolved]
  - Off label use [Unknown]

NARRATIVE: CASE EVENT DATE: 20030501
